FAERS Safety Report 7449478-X (Version None)
Quarter: 2011Q2

REPORT INFORMATION
  Report Type: 
  Country: None (occurrence: None)
  Receive Date: 20110502
  Receipt Date: 20110419
  Transmission Date: 20111010
  Serious: Yes (Hospitalization, Other)
  Sender: FDA-Public Use
  Company Number: US-BAYER-2011-009791

PATIENT
  Age: 45 Year
  Sex: Male

DRUGS (9)
  1. AVELOX [Suspect]
     Indication: UPPER RESPIRATORY TRACT INFECTION
     Dosage: 400 MG, QD
     Route: 048
     Dates: start: 20110126, end: 20110126
  2. CELEBREX [Concomitant]
     Dosage: 200 MG, QD
  3. FLONASE [Concomitant]
     Dosage: 2 PUFF(S), QD
     Route: 055
  4. AVELOX [Suspect]
     Dosage: UNK
     Dates: start: 20101201, end: 20101201
  5. PROVENTIL [Concomitant]
     Indication: ASTHMA
     Dosage: UNK UNK, PRN
     Route: 055
  6. METOPROLOL SUCCINATE [Concomitant]
     Indication: MIGRAINE PROPHYLAXIS
     Dosage: 25 MG, QD
  7. SYNTHROID [Concomitant]
     Dosage: 125 MG, QD
  8. ALLEGRA [Concomitant]
     Dosage: 180 MG, QD
  9. NEXIUM [Concomitant]
     Indication: GASTROINTESTINAL DISORDER
     Dosage: 40 MG, QD

REACTIONS (14)
  - CONVULSION [None]
  - PHARYNGEAL OEDEMA [None]
  - BLOOD PRESSURE DECREASED [None]
  - ERYTHEMA [None]
  - VOMITING [None]
  - LOSS OF CONSCIOUSNESS [None]
  - DERMATITIS ALLERGIC [None]
  - DIARRHOEA [None]
  - OBSTRUCTIVE AIRWAYS DISORDER [None]
  - NAUSEA [None]
  - ANAPHYLACTIC REACTION [None]
  - OEDEMA MOUTH [None]
  - DYSPNOEA [None]
  - RASH GENERALISED [None]
